FAERS Safety Report 6288895-0 (Version None)
Quarter: 2009Q3

REPORT INFORMATION
  Report Type: 
  Country: None (occurrence: None)
  Receive Date: 20090729
  Receipt Date: 20090722
  Transmission Date: 20100115
  Serious: Yes (Hospitalization)
  Sender: FDA-Public Use
  Company Number: DE-ABBOTT-09P-062-0586905-00

PATIENT
  Sex: Female
  Weight: 74 kg

DRUGS (2)
  1. HUMIRA [Suspect]
     Indication: ANKYLOSING SPONDYLITIS
     Dosage: 40 MG ONCE
     Route: 058
     Dates: start: 20090702, end: 20090702
  2. PREDNI H [Concomitant]
     Indication: ANKYLOSING SPONDYLITIS
     Dosage: 30-5 MG AS NEEDED
     Route: 048
     Dates: end: 20090701

REACTIONS (2)
  - DEVICE FAILURE [None]
  - VERTIGO [None]
